FAERS Safety Report 25766431 (Version 1)
Quarter: 2025Q3

REPORT INFORMATION
  Report Type: Spontaneous
  Country: US (occurrence: None)
  Receive Date: 20250904
  Receipt Date: 20250904
  Transmission Date: 20251021
  Serious: Yes (Hospitalization)
  Sender: FDA-CTU
  Company Number: None

PATIENT
  Age: 51 Year
  Sex: Female

DRUGS (8)
  1. UZEDY [Suspect]
     Active Substance: RISPERIDONE
     Indication: Schizophrenia
     Dosage: 250MG/0.7ML EVERY 2 MONTHS SUBCUTANEOUS?
     Route: 058
     Dates: start: 20240903, end: 20241006
  2. DEPAKOTE [Concomitant]
     Active Substance: DIVALPROEX SODIUM
  3. HALOPERIDL [Concomitant]
  4. LANTUS [Concomitant]
     Active Substance: INSULIN GLARGINE
  5. ONE TOUCH METER [Concomitant]
  6. ONE TOUCH TEST STRIPS [Concomitant]
  7. ONE TOUCH LANCETS [Concomitant]
  8. TRUEPLUS NEEDLES [Concomitant]

REACTIONS (4)
  - Schizophrenia [None]
  - Hyperglycaemia [None]
  - Renal injury [None]
  - Acute psychosis [None]

NARRATIVE: CASE EVENT DATE: 20250823
